FAERS Safety Report 24600984 (Version 2)
Quarter: 2024Q4

REPORT INFORMATION
  Report Type: Spontaneous
  Country: PL (occurrence: PL)
  Receive Date: 20241110
  Receipt Date: 20241119
  Transmission Date: 20250115
  Serious: Yes (Other)
  Sender: ABBVIE
  Company Number: PL-ABBVIE-5991845

PATIENT
  Age: 52 Year
  Sex: Female

DRUGS (2)
  1. VENETOCLAX [Suspect]
     Active Substance: VENETOCLAX
     Indication: Acute myeloid leukaemia recurrent
     Dosage: 400 (UNITS NOT PROVIDED)
     Route: 048
     Dates: start: 202403, end: 202407
  2. AZACITIDINE [Concomitant]
     Active Substance: AZACITIDINE
     Indication: Acute myeloid leukaemia
     Dosage: AZACYTIDINE

REACTIONS (5)
  - Acute myeloid leukaemia recurrent [Not Recovered/Not Resolved]
  - Minimal residual disease [Not Recovered/Not Resolved]
  - Off label use [Recovered/Resolved]
  - Drug resistance [Not Recovered/Not Resolved]
  - Myeloblast percentage increased [Not Recovered/Not Resolved]

NARRATIVE: CASE EVENT DATE: 20240301
